FAERS Safety Report 15103690 (Version 1)
Quarter: 2018Q2

REPORT INFORMATION
  Report Type: Spontaneous
  Country: US (occurrence: US)
  Receive Date: 20180611
  Receipt Date: 20180611
  Transmission Date: 20180711
  Serious: Yes (Other)
  Sender: FDA-Public Use
  Company Number: None

PATIENT
  Age: 30 Year
  Sex: Female

DRUGS (2)
  1. PRE-NATAL VITAMINS [Concomitant]
  2. COLACE [Suspect]
     Active Substance: DOCUSATE SODIUM
     Indication: CONSTIPATION
     Dosage: ?          QUANTITY:1 CAPSULE(S);?
     Route: 048
     Dates: start: 20180609, end: 20180610

REACTIONS (3)
  - Pregnancy [None]
  - Hypersensitivity [None]
  - Constipation [None]

NARRATIVE: CASE EVENT DATE: 20180610
